FAERS Safety Report 9552732 (Version 1)
Quarter: 2013Q3

REPORT INFORMATION
  Report Type: Spontaneous
  Country: US (occurrence: US)
  Receive Date: 20130925
  Receipt Date: 20130925
  Transmission Date: 20140515
  Serious: Yes (Other)
  Sender: FDA-Public Use
  Company Number: US-ELI_LILLY_AND_COMPANY-US201309004645

PATIENT
  Sex: Male

DRUGS (1)
  1. HUMALOG LISPRO [Suspect]
     Dosage: UNK

REACTIONS (1)
  - Dementia Alzheimer^s type [Not Recovered/Not Resolved]
